FAERS Safety Report 8199667-4 (Version None)
Quarter: 2012Q1

REPORT INFORMATION
  Report Type: 
  Country: None (occurrence: None)
  Receive Date: 20120311
  Receipt Date: 20120229
  Transmission Date: 20120608
  Serious: Yes (Hospitalization, Other)
  Sender: FDA-Public Use
  Company Number: US-ASTRAZENECA-2009UW03338

PATIENT
  Age: 66 Year
  Sex: Male
  Weight: 82.6 kg

DRUGS (13)
  1. LOPID [Concomitant]
     Route: 048
  2. GLUTROL [Concomitant]
     Route: 048
  3. FUROSEMIDE [Concomitant]
     Route: 048
  4. ATACAND HCT [Suspect]
     Route: 048
  5. POTASSIUM [Concomitant]
     Route: 048
  6. NEXIUM [Suspect]
     Route: 048
  7. ASPIRIN [Concomitant]
     Route: 048
  8. ACCURETIC [Concomitant]
  9. NORVASC [Concomitant]
     Route: 048
  10. ISOSORB [Concomitant]
     Route: 048
  11. TOPROL-XL [Suspect]
     Route: 048
  12. LISINOPRIL [Concomitant]
     Route: 048
  13. CLONIDINE [Concomitant]
     Route: 048

REACTIONS (7)
  - BLINDNESS [None]
  - DIABETES MELLITUS [None]
  - CARDIAC DISORDER [None]
  - VISUAL IMPAIRMENT [None]
  - INFLUENZA [None]
  - CARDIAC FAILURE [None]
  - MALAISE [None]
